FAERS Safety Report 4944528-4 (Version None)
Quarter: 2006Q1

REPORT INFORMATION
  Report Type: 
  Country: None (occurrence: None)
  Receive Date: 20060315
  Receipt Date: 20060302
  Transmission Date: 20060701
  Serious: Yes (Other)
  Sender: FDA-Public Use
  Company Number: PHNU2006DE01204

PATIENT
  Sex: Male

DRUGS (2)
  1. TEGRETOL [Suspect]
  2. TEGRETOL [Suspect]

REACTIONS (6)
  - ABDOMINAL PAIN [None]
  - ASTHENIA [None]
  - DRUG INTOLERANCE [None]
  - DRY MOUTH [None]
  - DYSPEPSIA [None]
  - PARALYSIS [None]
